FAERS Safety Report 9940674 (Version 1)
Quarter: 2014Q1

REPORT INFORMATION
  Report Type: Spontaneous
  Country: US (occurrence: US)
  Receive Date: 20140303
  Receipt Date: 20140303
  Transmission Date: 20141002
  Serious: Yes (Hospitalization)
  Sender: FDA-Public Use
  Company Number: US-BAYER-2014-026698

PATIENT
  Sex: Female

DRUGS (1)
  1. ADEMPAS [Suspect]
     Dosage: 0.5 MG, UNK
     Dates: start: 20140204, end: 20140218

REACTIONS (2)
  - Oedema [None]
  - Fluid overload [None]
